FAERS Safety Report 5417483-0 (Version None)
Quarter: 2007Q3

REPORT INFORMATION
  Report Type: 
  Country: None (occurrence: None)
  Receive Date: 20070718
  Receipt Date: 20061023
  Transmission Date: 20080115
  Serious: Yes (Hospitalization, Other)
  Sender: FDA-Public Use
  Company Number: 2005115247

PATIENT
  Age: 70 Year
  Sex: Male
  Weight: 112.4921 kg

DRUGS (3)
  1. CELEBREX [Suspect]
     Dosage: 200 MG
  2. NEURONTIN [Concomitant]
  3. MULTI-VITAMINS [Concomitant]

REACTIONS (1)
  - MYOCARDIAL INFARCTION [None]
